FAERS Safety Report 20938693 (Version 1)
Quarter: 2022Q2

REPORT INFORMATION
  Report Type: Spontaneous
  Country: CN (occurrence: CN)
  Receive Date: 20220609
  Receipt Date: 20220609
  Transmission Date: 20220721
  Serious: Yes (Hospitalization, Other)
  Sender: FDA-Public Use
  Company Number: CN-009507513-2206CHN001081

PATIENT
  Age: 85 Year
  Sex: Male
  Weight: 44 kg

DRUGS (6)
  1. CILASTATIN SODIUM\IMIPENEM [Suspect]
     Active Substance: CILASTATIN SODIUM\IMIPENEM
     Indication: Pneumonia aspiration
     Dosage: 0.5 G, TID
     Route: 041
     Dates: start: 20220510, end: 20220511
  2. VALPROATE SODIUM [Concomitant]
     Active Substance: VALPROATE SODIUM
     Indication: Epilepsy
     Dosage: 0.2 G, TID
     Dates: start: 20220429, end: 20220526
  3. MIDAZOLAM [Concomitant]
     Active Substance: MIDAZOLAM
     Indication: Epilepsy
     Dosage: 50 MG, QD, PUMP INFUSION
     Dates: start: 20220429, end: 20220515
  4. SODIUM CHLORIDE [Concomitant]
     Active Substance: SODIUM CHLORIDE
     Indication: Medication dilution
     Dosage: 100 ML, TID
     Route: 041
     Dates: start: 20220510, end: 20220511
  5. SODIUM CHLORIDE [Concomitant]
     Active Substance: SODIUM CHLORIDE
     Indication: Anti-infective therapy
  6. CEFOPERAZONE\SULBACTAM [Concomitant]
     Active Substance: CEFOPERAZONE\SULBACTAM
     Indication: Anti-infective therapy
     Dosage: 2G, 3/DAY

REACTIONS (2)
  - Epilepsy [Recovering/Resolving]
  - Therapeutic product effect incomplete [Unknown]

NARRATIVE: CASE EVENT DATE: 20220501
